FAERS Safety Report 4310441-9 (Version None)
Quarter: 2004Q1

REPORT INFORMATION
  Report Type: 
  Country: None (occurrence: None)
  Receive Date: 20040302
  Receipt Date: 20031113
  Transmission Date: 20041129
  Serious: Yes (Death, Hospitalization)
  Sender: FDA-Public Use
  Company Number: A01200305477

PATIENT
  Age: 70 Year
  Sex: Male

DRUGS (9)
  1. PLAVIX [Suspect]
     Dosage: ORAL
     Route: 048
     Dates: start: 20020515, end: 20031001
  2. OXALIPLATIN [Concomitant]
  3. PLACEBO [Concomitant]
  4. ADIRO (ACETYLSALICYLIC ACID) [Concomitant]
  5. URBASON         (METHYLPREDNISOLONE) [Concomitant]
  6. OMEPRAZOLE [Concomitant]
  7. BENESTAN       (ALFUZOSIN HYDROCHLORIDE) [Concomitant]
  8. FLUOROURACIL [Concomitant]
  9. LEUCOVORIN [Concomitant]

REACTIONS (16)
  - ALANINE AMINOTRANSFERASE INCREASED [None]
  - ASPARTATE AMINOTRANSFERASE INCREASED [None]
  - BLOOD ALKALINE PHOSPHATASE INCREASED [None]
  - BLOOD BILIRUBIN INCREASED [None]
  - BLOOD CHLORIDE INCREASED [None]
  - BRONCHIECTASIS [None]
  - CARDIAC FAILURE [None]
  - ECHOCARDIOGRAM ABNORMAL [None]
  - EXTRASYSTOLES [None]
  - GAMMA-GLUTAMYLTRANSFERASE INCREASED [None]
  - INTERSTITIAL LUNG DISEASE [None]
  - PLATELET COUNT DECREASED [None]
  - PNEUMONITIS [None]
  - PULMONARY FIBROSIS [None]
  - PULMONARY OEDEMA [None]
  - RESPIRATORY FAILURE [None]
